FAERS Safety Report 7611614-X (Version None)
Quarter: 2011Q3

REPORT INFORMATION
  Report Type: 
  Country: None (occurrence: None)
  Receive Date: 20110715
  Receipt Date: 20110706
  Transmission Date: 20111222
  Serious: Yes (Hospitalization, Other)
  Sender: FDA-Public Use
  Company Number: US-ACTELION-A-US2008-22559

PATIENT

DRUGS (21)
  1. COUMADIN [Concomitant]
  2. TRACLEER [Suspect]
     Indication: PULMONARY ARTERIAL HYPERTENSION
     Dosage: UNK MG, UNK
     Route: 048
     Dates: start: 20031124, end: 20110603
  3. GLYBURIDE [Concomitant]
  4. DEMADEX [Concomitant]
  5. MULTI-VITAMIN [Concomitant]
  6. PLAVIX [Concomitant]
  7. GLUCOSAMINE [Concomitant]
  8. AMITRIPTYLINE HCL [Concomitant]
  9. HYDRALAZINE HCL [Concomitant]
  10. LOVAZA [Concomitant]
  11. NEXIUM [Concomitant]
  12. AMLODIPINE [Concomitant]
  13. TOPROL-XL [Concomitant]
  14. FORTICAL [Concomitant]
  15. GABAPENTIN [Concomitant]
  16. MECLIZIN [Concomitant]
  17. TRAMADOL HCL [Concomitant]
  18. AMARYL [Concomitant]
  19. LEVOTHYROXINE [Concomitant]
  20. TRICOR [Concomitant]
  21. ZESTRIL [Concomitant]

REACTIONS (8)
  - ASPARTATE AMINOTRANSFERASE INCREASED [None]
  - ALANINE AMINOTRANSFERASE INCREASED [None]
  - PULMONARY ARTERIAL HYPERTENSION [None]
  - FLUID OVERLOAD [None]
  - DIZZINESS [None]
  - RENAL IMPAIRMENT [None]
  - LIVER FUNCTION TEST ABNORMAL [None]
  - MALAISE [None]
